FAERS Safety Report 25519318 (Version 1)
Quarter: 2025Q3

REPORT INFORMATION
  Report Type: Spontaneous
  Country: UM (occurrence: UM)
  Receive Date: 20250704
  Receipt Date: 20250704
  Transmission Date: 20251021
  Serious: No
  Sender: ROCHE
  Company Number: UM-ROCHE-10000322499

PATIENT
  Age: 13 Year
  Sex: Male
  Weight: 50.8 kg

DRUGS (1)
  1. XOLAIR [Suspect]
     Active Substance: OMALIZUMAB
     Indication: Urticaria
     Route: 058
     Dates: start: 202307

REACTIONS (5)
  - Accidental underdose [Unknown]
  - Injection site pain [Recovered/Resolved]
  - Device issue [Unknown]
  - Exposure via skin contact [Recovered/Resolved]
  - Product dose omission issue [Unknown]

NARRATIVE: CASE EVENT DATE: 20250624
